FAERS Safety Report 7599108-1 (Version None)
Quarter: 2011Q3

REPORT INFORMATION
  Report Type: 
  Country: None (occurrence: None)
  Receive Date: 20110711
  Receipt Date: 20100301
  Transmission Date: 20111222
  Serious: Yes (Other)
  Sender: FDA-Public Use
  Company Number: US-BAYER-200920259NA

PATIENT
  Age: 62 Year
  Sex: Female
  Weight: 99.091 kg

DRUGS (25)
  1. PROTONIX [Concomitant]
  2. CELEXA [Concomitant]
  3. ZOCOR [Concomitant]
  4. EPOGEN [Concomitant]
  5. POTASSIUM CHLORIDE [Concomitant]
  6. PAXIL [Concomitant]
  7. MAGNEVIST [Suspect]
     Indication: ANGIOGRAM
     Dates: start: 20020129, end: 20020129
  8. SYNTHROID [Concomitant]
  9. NORVASC [Concomitant]
  10. SODIUM BICARBONATE [Concomitant]
  11. OMNISCAN [Suspect]
     Indication: ANGIOGRAM
     Dosage: DOSE ^0.1MMOL/KG^
     Route: 042
     Dates: start: 20030807, end: 20030807
  12. PROHANCE [Suspect]
  13. RENAGEL [Concomitant]
     Route: 048
  14. NEPHROVITE [VIT C,VIT H,B5,B12,B9,B3,B6,B2,B1 HCL] [Concomitant]
  15. MULTIHANCE [Suspect]
  16. VALCYTE [Concomitant]
  17. NEPHROCAPS [Concomitant]
     Dosage: 1 DAILY
     Route: 048
  18. NIFEREX-150 FORTE [Concomitant]
  19. FOSRENOL [Concomitant]
  20. TACROLIMUS [Concomitant]
     Indication: TRANSPLANT EVALUATION
  21. PHOSLO [Concomitant]
     Dosage: 2 TABLETS TID
     Route: 048
  22. MIDODRINE HYDROCHLORIDE [Concomitant]
  23. OPTIMARK [Suspect]
  24. CELLCEPT [Concomitant]
     Indication: TRANSPLANT EVALUATION
  25. COUMADIN [Concomitant]

REACTIONS (21)
  - FIBROSIS [None]
  - JOINT CONTRACTURE [None]
  - CATHETER SITE ERYTHEMA [None]
  - JOINT CREPITATION [None]
  - GENERAL PHYSICAL HEALTH DETERIORATION [None]
  - BREAST FIBROSIS [None]
  - NEPHROGENIC SYSTEMIC FIBROSIS [None]
  - SKIN TIGHTNESS [None]
  - EXERCISE TOLERANCE DECREASED [None]
  - SKIN HYPERTROPHY [None]
  - SKIN DISCOLOURATION [None]
  - JOINT RANGE OF MOTION DECREASED [None]
  - PEAU D'ORANGE [None]
  - MOBILITY DECREASED [None]
  - PAIN IN EXTREMITY [None]
  - RASH MACULAR [None]
  - SKIN PLAQUE [None]
  - JOINT STIFFNESS [None]
  - SKIN FIBROSIS [None]
  - SKIN INDURATION [None]
  - OEDEMA PERIPHERAL [None]
